FAERS Safety Report 10581768 (Version 1)
Quarter: 2014Q4

REPORT INFORMATION
  Report Type: Spontaneous
  Country: PT (occurrence: PT)
  Receive Date: 20141113
  Receipt Date: 20141113
  Transmission Date: 20150529
  Serious: Yes (Other)
  Sender: FDA-Public Use
  Company Number: PT-PAR PHARMACEUTICAL, INC-2014SCPR009484

PATIENT

DRUGS (1)
  1. ADRENALIN [Suspect]
     Active Substance: EPINEPHRINE
     Indication: HAEMOSTASIS
     Dosage: 1 MG, SINGLE, IN THE BASE OF SUBSEROUS MYOMA
     Route: 050

REACTIONS (1)
  - Stress cardiomyopathy [Recovered/Resolved]
